FAERS Safety Report 7801568-5 (Version None)
Quarter: 2011Q4

REPORT INFORMATION
  Report Type: 
  Country: None (occurrence: None)
  Receive Date: 20111006
  Receipt Date: 20111006
  Transmission Date: 20120403
  Serious: Yes (Hospitalization)
  Sender: FDA-Public Use
  Company Number: None

PATIENT
  Age: 79 Year
  Sex: Female
  Weight: 126 kg

DRUGS (11)
  1. LASIX [Concomitant]
  2. PAXIL [Concomitant]
  3. MIRALAX [Concomitant]
  4. ENALAPRIL MALEATE [Concomitant]
  5. ASPIRIN [Concomitant]
  6. INSULIN [Concomitant]
  7. ALBUTEROL [Concomitant]
  8. VISIPAQUE [Suspect]
     Indication: COMPUTERISED TOMOGRAM
     Dosage: 125ML ONCE IV RECENT
     Route: 042
  9. FLUTICASONE PROPIONATE [Concomitant]
  10. LORAZEPAM [Concomitant]
  11. ETODOLAC [Concomitant]

REACTIONS (5)
  - SMALL INTESTINAL OBSTRUCTION [None]
  - BLOOD CREATININE INCREASED [None]
  - OLIGURIA [None]
  - DEHYDRATION [None]
  - CONSTIPATION [None]
